FAERS Safety Report 6063997-2 (Version None)
Quarter: 2009Q1

REPORT INFORMATION
  Report Type: 
  Country: None (occurrence: None)
  Receive Date: 20090203
  Receipt Date: 20090203
  Transmission Date: 20090719
  Serious: Yes (Other)
  Sender: FDA-Public Use
  Company Number: None

PATIENT
  Age: 48 Year

DRUGS (1)
  1. WARFARIN SODIUM [Suspect]
     Dosage: 7.5 MONDAY AND FRIDAY 5 MG ROW 40 MG WEEKLY/DAILY DOSE ORAL
     Route: 048
     Dates: start: 20080701

REACTIONS (3)
  - INCORRECT DOSE ADMINISTERED [None]
  - MEDICATION ERROR [None]
  - RECTAL HAEMORRHAGE [None]
